FAERS Safety Report 9197372 (Version 1)
Quarter: 2013Q1

REPORT INFORMATION
  Report Type: Spontaneous
  Country: US (occurrence: None)
  Receive Date: 20120709
  Receipt Date: 20120709
  Transmission Date: 20140127
  Serious: No
  Sender: FDA-Public Use
  Company Number: 2012HGS-003524

PATIENT
  Age: 45 Year
  Sex: Female
  Weight: 95.26 kg

DRUGS (6)
  1. BENLYSTA [Suspect]
     Indication: SYSTEMIC LUPUS ERYTHEMATOSUS
     Dosage: 1 IN 28 D
     Route: 042
     Dates: start: 20120329
  2. METHOTREXATE (METHOTREXATE) (METHOTREXATE) [Concomitant]
  3. PLAQUENIL (HYDROXYCHLOROQUINE PHOSPHATE) [Concomitant]
  4. PREDNISONE (PREDNISONE) (PREDNISONE) [Concomitant]
  5. VITAMIN D (ERGOCALCIFEROL) (ERGOCALCIFEROL) [Concomitant]
  6. ALBUTEROL (SALBUTAMOL) (SALBUTANOL) [Concomitant]

REACTIONS (2)
  - Joint swelling [None]
  - Abdominal distension [None]
